FAERS Safety Report 14778833 (Version 2)
Quarter: 2018Q2

REPORT INFORMATION
  Report Type: Spontaneous
  Country: ES (occurrence: ES)
  Receive Date: 20180419
  Receipt Date: 20180505
  Transmission Date: 20180711
  Serious: Yes (Life-Threatening, Hospitalization, Other)
  Sender: FDA-Public Use
  Company Number: ES-AUROBINDO-AUR-APL-2018-020521

PATIENT
  Age: 58 Year
  Sex: Female

DRUGS (1)
  1. LEVOFLOXACIN. [Suspect]
     Active Substance: LEVOFLOXACIN
     Indication: RESPIRATORY TRACT INFECTION
     Dosage: UNK
     Route: 065

REACTIONS (8)
  - Left ventricular dysfunction [Recovered/Resolved]
  - Cardiac arrest [Recovered/Resolved]
  - Anaphylactic reaction [Recovered/Resolved]
  - Kounis syndrome [Recovered/Resolved]
  - Drug hypersensitivity [Recovered/Resolved]
  - Ventricular fibrillation [Recovered/Resolved]
  - Akinesia [Recovered/Resolved]
  - Acute myocardial infarction [Recovered/Resolved]
